FAERS Safety Report 7577398-9 (Version None)
Quarter: 2011Q2

REPORT INFORMATION
  Report Type: 
  Country: None (occurrence: None)
  Receive Date: 20110628
  Receipt Date: 20110616
  Transmission Date: 20111010
  Serious: Yes (Life-Threatening, Other)
  Sender: FDA-Public Use
  Company Number: DE-BAYER-2011-052029

PATIENT
  Age: 62 Year
  Sex: Female

DRUGS (2)
  1. SORAFENIB (RAF KINASE INHIBITOR) [Suspect]
     Indication: BREAST CANCER METASTATIC
     Dosage: DAILY DOSE 400 MG
     Dates: start: 20110530, end: 20110614
  2. PACLITAXEL [Suspect]
     Indication: BREAST CANCER METASTATIC
     Dosage: UNK
     Dates: start: 20110530, end: 20110606

REACTIONS (3)
  - LYMPHOPENIA [None]
  - NEUTROPENIA [None]
  - LEUKOPENIA [None]
